FAERS Safety Report 5451871-1 (Version None)
Quarter: 2007Q3

REPORT INFORMATION
  Report Type: 
  Country: None (occurrence: None)
  Receive Date: 20070803
  Receipt Date: 20060816
  Transmission Date: 20080115
  Serious: Yes (Other)
  Sender: FDA-Public Use
  Company Number: 2006-08-0974

PATIENT
  Sex: Female

DRUGS (4)
  1. INTRON A [Suspect]
     Indication: ENDOCRINE NEOPLASM
     Dosage: 3 MIU;TIW, 5 MIU;TIW, 10 MIU;TIW
     Dates: start: 20060101, end: 20060101
  2. INTRON A [Suspect]
     Indication: ENDOCRINE NEOPLASM
     Dosage: 3 MIU;TIW, 5 MIU;TIW, 10 MIU;TIW
     Dates: start: 20060101, end: 20060101
  3. INTRON A [Suspect]
     Indication: ENDOCRINE NEOPLASM
     Dosage: 3 MIU;TIW, 5 MIU;TIW, 10 MIU;TIW
     Dates: start: 20060101, end: 20060101
  4. ANTIBIOTIC [Concomitant]

REACTIONS (3)
  - DYSPNOEA [None]
  - INFECTION [None]
  - RENAL FAILURE [None]
